FAERS Safety Report 17683710 (Version 1)
Quarter: 2020Q2

REPORT INFORMATION
  Report Type: Spontaneous
  Country: US (occurrence: US)
  Receive Date: 20200417
  Receipt Date: 20200417
  Transmission Date: 20200714
  Serious: No
  Sender: FDA-Public Use
  Company Number: None

PATIENT

DRUGS (1)
  1. ENTYVIO [Suspect]
     Active Substance: VEDOLIZUMAB
     Dosage: ?          OTHER DOSE:N/A;OTHER FREQUENCY:OTHER;?
     Route: 058
     Dates: start: 20200101

REACTIONS (1)
  - Off label use [None]

NARRATIVE: CASE EVENT DATE: 20200417
